FAERS Safety Report 5199892-0 (Version None)
Quarter: 2007Q1

REPORT INFORMATION
  Report Type: 
  Country: None (occurrence: None)
  Receive Date: 20070105
  Receipt Date: 20070102
  Transmission Date: 20070707
  Serious: Yes (Hospitalization)
  Sender: FDA-Public Use
  Company Number: GB-ROCHE-474472

PATIENT
  Age: 46 Year
  Sex: Male
  Weight: 58.2 kg

DRUGS (5)
  1. CAPECITABINE [Suspect]
     Indication: RECTAL CANCER
     Route: 048
     Dates: start: 20060926, end: 20061027
  2. IRINOTECAN HCL [Suspect]
     Indication: RECTAL CANCER
     Route: 042
     Dates: start: 20060926, end: 20061017
  3. PERINDOPRIL ERBUMINE [Concomitant]
     Dosage: REPORTED ^ON LONG TERM TREATMENT^
     Route: 048
  4. LANSOPRAZOLE [Concomitant]
     Indication: GASTRITIS
     Dosage: REPORTED ^ON LONG TERM TREATMENT^
     Route: 048
     Dates: start: 20061104
  5. CYCLIZINE [Concomitant]
     Indication: NAUSEA
     Dosage: REPORTED ^ON LONG TERM TREATMENT^.  GIVEN PRN.
     Route: 048
     Dates: start: 20061104

REACTIONS (1)
  - DEHYDRATION [None]
